FAERS Safety Report 18018384 (Version 30)
Quarter: 2025Q1

REPORT INFORMATION
  Report Type: Report from Study
  Country: US (occurrence: US)
  Receive Date: 20200714
  Receipt Date: 20250226
  Transmission Date: 20250409
  Serious: Yes (Hospitalization, Other)
  Sender: TAKEDA
  Company Number: US-SHIRE-US202022411

PATIENT
  Age: 65 Year
  Sex: Female
  Weight: 82 kg

DRUGS (38)
  1. HUMAN IMMUNOGLOBULIN G [Suspect]
     Active Substance: HUMAN IMMUNOGLOBULIN G
     Indication: Immunodeficiency common variable
     Dosage: 15 GRAM, 1/WEEK
     Dates: start: 20150218
  2. HUMAN IMMUNOGLOBULIN G [Suspect]
     Active Substance: HUMAN IMMUNOGLOBULIN G
     Indication: Primary immunodeficiency syndrome
     Dosage: 15 GRAM, 1/WEEK
  3. HUMAN IMMUNOGLOBULIN G [Suspect]
     Active Substance: HUMAN IMMUNOGLOBULIN G
  4. PREDNISONE [Suspect]
     Active Substance: PREDNISONE
     Indication: Product used for unknown indication
  5. PAXLOVID [Suspect]
     Active Substance: NIRMATRELVIR\RITONAVIR
     Indication: Product used for unknown indication
  6. ACETAMINOPHEN [Concomitant]
     Active Substance: ACETAMINOPHEN
  7. DOCUSATE SODIUM [Concomitant]
     Active Substance: DOCUSATE SODIUM
  8. ACIDOPHILUS [Concomitant]
     Active Substance: LACTOBACILLUS ACIDOPHILUS
  9. DULERA [Concomitant]
     Active Substance: FORMOTEROL FUMARATE DIHYDRATE\MOMETASONE FUROATE
  10. AMITRIPTYLINE HYDROCHLORIDE [Concomitant]
     Active Substance: AMITRIPTYLINE HYDROCHLORIDE
  11. GLUCOSAMINE [Concomitant]
     Active Substance: GLUCOSAMINE
  12. NEXIUM I.V. [Concomitant]
     Active Substance: ESOMEPRAZOLE SODIUM
  13. PREMARIN [Concomitant]
     Active Substance: ESTROGENS, CONJUGATED
  14. CLOTRIMAZOLE [Concomitant]
     Active Substance: CLOTRIMAZOLE
  15. INCRUSE ELLIPTA [Concomitant]
     Active Substance: UMECLIDINIUM BROMIDE
  16. LIDOCAINE\PRILOCAINE [Concomitant]
     Active Substance: LIDOCAINE\PRILOCAINE
  17. Theramet [Concomitant]
  18. METFORMIN HYDROCHLORIDE [Concomitant]
     Active Substance: METFORMIN HYDROCHLORIDE
  19. LANTUS [Concomitant]
     Active Substance: INSULIN GLARGINE
  20. DIPHENHYDRAMINE HYDROCHLORIDE [Concomitant]
     Active Substance: DIPHENHYDRAMINE HYDROCHLORIDE
  21. ZITHROMAX [Concomitant]
     Active Substance: AZITHROMYCIN DIHYDRATE
  22. FIBER THERAPY (CALCIUM POLYCARBOPHIL) [Concomitant]
     Active Substance: CALCIUM POLYCARBOPHIL
  23. SODIUM CHLORIDE [Concomitant]
     Active Substance: SODIUM CHLORIDE
  24. DIPHENHYDRAMINE [Concomitant]
     Active Substance: DIPHENHYDRAMINE
  25. EPINEPHRINE [Concomitant]
     Active Substance: EPINEPHRINE
  26. LORATADINE [Concomitant]
     Active Substance: LORATADINE
  27. AZITHROMYCIN [Concomitant]
     Active Substance: AZITHROMYCIN
  28. AMOXICILLIN AND CLAVULANATE POTASSIUM [Concomitant]
     Active Substance: AMOXICILLIN\CLAVULANATE POTASSIUM
  29. METFORMIN [Concomitant]
     Active Substance: METFORMIN HYDROCHLORIDE
  30. CEFUROXIME [Concomitant]
     Active Substance: CEFUROXIME
  31. DOXYCYCLINE HYCLATE [Concomitant]
     Active Substance: DOXYCYCLINE HYCLATE
  32. XOLAIR [Concomitant]
     Active Substance: OMALIZUMAB
  33. GLUCOSAMINE [Concomitant]
     Active Substance: GLUCOSAMINE
  34. SINGULAIR [Concomitant]
     Active Substance: MONTELUKAST SODIUM
  35. LORAZEPAM [Concomitant]
     Active Substance: LORAZEPAM
  36. ALBUTEROL SULFATE [Concomitant]
     Active Substance: ALBUTEROL SULFATE
  37. DUPIXENT [Concomitant]
     Active Substance: DUPILUMAB
  38. FLUCONAZOLE [Concomitant]
     Active Substance: FLUCONAZOLE

REACTIONS (34)
  - Bone marrow disorder [Unknown]
  - Iron deficiency anaemia [Unknown]
  - Diverticulitis [Unknown]
  - Pneumonia [Unknown]
  - Lower respiratory tract infection [Unknown]
  - Sinobronchitis [Unknown]
  - Mycobacterium avium complex infection [Unknown]
  - Asthma [Unknown]
  - Red blood cell count decreased [Unknown]
  - Weight abnormal [Unknown]
  - Body height decreased [Unknown]
  - Illness [Unknown]
  - Diverticulum intestinal [Recovering/Resolving]
  - Plantar fasciitis [Unknown]
  - Gallbladder disorder [Unknown]
  - Dermatitis contact [Unknown]
  - Infection [Recovered/Resolved]
  - Hernia [Unknown]
  - Bronchitis [Not Recovered/Not Resolved]
  - Blood glucose increased [Unknown]
  - Multiple allergies [Recovering/Resolving]
  - Seasonal allergy [Unknown]
  - Infusion site discharge [Unknown]
  - COVID-19 [Not Recovered/Not Resolved]
  - Drug hypersensitivity [Unknown]
  - Back disorder [Unknown]
  - Product dose omission issue [Unknown]
  - Musculoskeletal discomfort [Unknown]
  - Fall [Unknown]
  - Limb injury [Unknown]
  - Pulmonary mass [Unknown]
  - Upper respiratory tract infection [Unknown]
  - Sinusitis [Not Recovered/Not Resolved]
  - Anaemia [Unknown]

NARRATIVE: CASE EVENT DATE: 20231113
